FAERS Safety Report 5581552-5 (Version None)
Quarter: 2008Q1

REPORT INFORMATION
  Report Type: 
  Country: None (occurrence: None)
  Receive Date: 20080102
  Receipt Date: 20080102
  Transmission Date: 20080703
  Serious: Yes (Other)
  Sender: FDA-Public Use
  Company Number: None

PATIENT
  Age: 56 Year
  Sex: Male
  Weight: 88.4514 kg

DRUGS (1)
  1. LOTRIMIN AF [Suspect]
     Indication: TINEA CRURIS
     Dosage: THIN FILM DAILY FOR TWO WEEK TRANSDERMAL
     Route: 062

REACTIONS (2)
  - BLOOD TESTOSTERONE DECREASED [None]
  - LETHARGY [None]
